FAERS Safety Report 24410727 (Version 1)
Quarter: 2024Q4

REPORT INFORMATION
  Report Type: Spontaneous
  Country: US (occurrence: US)
  Receive Date: 20241008
  Receipt Date: 20241008
  Transmission Date: 20250115
  Serious: Yes (Life-Threatening, Hospitalization)
  Sender: MYLAN
  Company Number: US-MYLANLABS-2024M1088479

PATIENT
  Age: 19 Year
  Sex: Female

DRUGS (1)
  1. DIPHENHYDRAMINE [Suspect]
     Active Substance: DIPHENHYDRAMINE
     Indication: Product used for unknown indication
     Dosage: THREE HUNDRED TABLET CONTAINER
     Route: 048

REACTIONS (6)
  - Overdose [Unknown]
  - Cardiac arrest [Recovering/Resolving]
  - Ventricular tachycardia [Unknown]
  - Multiple organ dysfunction syndrome [Unknown]
  - Seizure [Unknown]
  - Tachycardia [Unknown]
